FAERS Safety Report 20252273 (Version 1)
Quarter: 2021Q4

REPORT INFORMATION
  Report Type: Report from Study
  Country: CA (occurrence: CA)
  Receive Date: 20211229
  Receipt Date: 20211229
  Transmission Date: 20220303
  Serious: Yes (Other)
  Sender: FDA-Public Use
  Company Number: CA-BEH-2021139889

PATIENT
  Age: 78 Year
  Sex: Female
  Weight: 81.9 kg

DRUGS (2)
  1. HIZENTRA [Suspect]
     Active Substance: HUMAN IMMUNOGLOBULIN G
     Indication: Primary immunodeficiency syndrome
     Dosage: 8 GRAM, QW
     Route: 050
     Dates: start: 20181204
  2. HIZENTRA [Suspect]
     Active Substance: HUMAN IMMUNOGLOBULIN G
     Dosage: 8 GRAM, QW
     Route: 050
     Dates: start: 20211220

REACTIONS (7)
  - Renal failure [Unknown]
  - Chills [Unknown]
  - Pyrexia [Unknown]
  - Feeling cold [Unknown]
  - Anxiety [Unknown]
  - Genital blister [Unknown]
  - Illness [Unknown]

NARRATIVE: CASE EVENT DATE: 20210101
